FAERS Safety Report 5208310-5 (Version None)
Quarter: 2007Q1

REPORT INFORMATION
  Report Type: 
  Country: None (occurrence: None)
  Receive Date: 20070110
  Receipt Date: 20070110
  Transmission Date: 20070707
  Serious: Yes (Hospitalization)
  Sender: FDA-Public Use
  Company Number: None

PATIENT
  Age: 53 Year
  Sex: Male
  Weight: 75 kg

DRUGS (1)
  1. DEPAKENE [Suspect]
     Indication: MANIA
     Dosage: 1,000 MG/20 ML BID ORAL
     Route: 048
     Dates: start: 20060601, end: 20061201

REACTIONS (3)
  - DYSSTASIA [None]
  - HEPATIC ENCEPHALOPATHY [None]
  - LETHARGY [None]
